FAERS Safety Report 9575899 (Version 1)
Quarter: 2013Q4

REPORT INFORMATION
  Report Type: Spontaneous
  Country: US (occurrence: US)
  Receive Date: 20131001
  Receipt Date: 20131001
  Transmission Date: 20140711
  Serious: No
  Sender: FDA-Public Use
  Company Number: US-AMGEN-USASP2013000245

PATIENT
  Age: 60 Year
  Sex: Female
  Weight: 104.31 kg

DRUGS (16)
  1. ENBREL [Suspect]
     Indication: RHEUMATOID ARTHRITIS
     Dosage: 50 MG, QWK
     Route: 058
  2. PLAQUENIL                          /00072602/ [Concomitant]
     Dosage: 200 MG, UNK
  3. LEVOTHYROXIN [Concomitant]
     Dosage: 88 MUG, UNK
  4. BUSPAR [Concomitant]
     Dosage: 10 MG, UNK
  5. ATENOLOL [Concomitant]
     Dosage: 25 MG, UNK
  6. ASPIRIN [Concomitant]
     Dosage: 81 MG, UNK
  7. FOLIC ACID [Concomitant]
     Dosage: UNK
  8. HYDROCHLOROTHIAZIDE W/TRIAMTERENE [Concomitant]
     Dosage: 25-50 MG
  9. PRILOSEC                           /00661201/ [Concomitant]
     Dosage: 10 MG, UNK
  10. CRANBERRY                          /01512301/ [Concomitant]
     Dosage: UNK
  11. CALCIUM [Concomitant]
     Dosage: 500 UNK, UNK
  12. VITAMIN C                          /00008001/ [Concomitant]
     Dosage: 500 MG, UNK
  13. VITAMIN E                          /00110501/ [Concomitant]
     Dosage: 1000 UNIT, UNK
  14. FISH OIL [Concomitant]
     Dosage: UNK
  15. MOVE FREE [Concomitant]
     Dosage: 500-400
  16. NASONEX [Concomitant]
     Dosage: 50 MCG/AC

REACTIONS (4)
  - Injection site bruising [Unknown]
  - Rash [Unknown]
  - Pruritus [Unknown]
  - Visual impairment [Unknown]
